FAERS Safety Report 5841253-2 (Version None)
Quarter: 2008Q3

REPORT INFORMATION
  Report Type: 
  Country: None (occurrence: None)
  Receive Date: 20080812
  Receipt Date: 20080808
  Transmission Date: 20090109
  Serious: Yes (Hospitalization)
  Sender: FDA-Public Use
  Company Number: JP-BRISTOL-MYERS SQUIBB COMPANY-14283733

PATIENT
  Age: 53 Year
  Sex: Female

DRUGS (2)
  1. TAXOL [Suspect]
     Indication: UTERINE CANCER
     Dosage: THERAPY INITIATED ON: 26-DEC-2005
     Route: 041
     Dates: start: 20060418, end: 20060418
  2. PARAPLATIN [Suspect]
     Indication: UTERINE CANCER
     Dosage: THERAPY INITIATED ON: 26-DEC-2005
     Route: 041
     Dates: start: 20060418, end: 20060418

REACTIONS (2)
  - OEDEMA PERIPHERAL [None]
  - SCLERODERMA [None]
